FAERS Safety Report 4727676-3 (Version None)
Quarter: 2005Q3

REPORT INFORMATION
  Report Type: 
  Country: None (occurrence: None)
  Receive Date: 20050725
  Receipt Date: 20050601
  Transmission Date: 20060218
  Serious: No
  Sender: FDA-Public Use
  Company Number: CART-10408

PATIENT
  Age: 47 Year
  Sex: Female

DRUGS (2)
  1. CARTICEL [Suspect]
     Indication: ARTHROPATHY
     Dosage: 1 NA ONCE IS
     Dates: start: 19960627, end: 19960627
  2. CARTICEL [Suspect]
     Indication: ARTHROPATHY
     Dosage: 1 NA ONCE IS
     Dates: start: 19981123, end: 19981123

REACTIONS (5)
  - ARTHROFIBROSIS [None]
  - FAILURE OF IMPLANT [None]
  - GRAFT DELAMINATION [None]
  - HYPERTROPHY [None]
  - JOINT ADHESION [None]
